FAERS Safety Report 6406811-5 (Version None)
Quarter: 2009Q4

REPORT INFORMATION
  Report Type: 
  Country: None (occurrence: None)
  Receive Date: 20091020
  Receipt Date: 20091007
  Transmission Date: 20100525
  Serious: Yes (Other)
  Sender: FDA-Public Use
  Company Number: RU-PFIZER INC-2009245644

PATIENT
  Age: 63 Year

DRUGS (2)
  1. XALATAN [Suspect]
     Indication: OPEN ANGLE GLAUCOMA
     Dosage: 1 GTT, 1X/DAY
     Route: 047
     Dates: start: 20090301, end: 20090720
  2. TIMOLOL [Suspect]

REACTIONS (2)
  - DRUG INEFFECTIVE [None]
  - INTRAOCULAR PRESSURE INCREASED [None]
